FAERS Safety Report 6931626-9 (Version None)
Quarter: 2010Q3

REPORT INFORMATION
  Report Type: 
  Country: None (occurrence: None)
  Receive Date: 20100819
  Receipt Date: 20100812
  Transmission Date: 20110219
  Serious: Yes (Death, Other)
  Sender: FDA-Public Use
  Company Number: US-JNJFOC-20100805769

PATIENT
  Age: 61 Year
  Sex: Male

DRUGS (10)
  1. FENTANYL [Suspect]
     Indication: PAIN
     Route: 062
  2. MORPHINE SULFATE [Suspect]
     Indication: PAIN
     Route: 037
  3. OXYCODONE [Suspect]
     Indication: PAIN
     Route: 065
  4. CARISOPRODOL [Suspect]
     Indication: PAIN
     Route: 065
  5. DIAZEPAM [Suspect]
     Indication: PAIN
     Route: 065
  6. HYDROCODONE BITARTRATE [Suspect]
     Indication: PAIN
     Route: 065
  7. MEPROBAMATE [Suspect]
     Indication: PAIN
     Route: 065
  8. OXAZEPAM [Suspect]
     Indication: PAIN
     Route: 065
  9. TEMAZEPAM [Suspect]
     Indication: PAIN
     Route: 065
  10. MORPHINE [Suspect]
     Indication: PAIN
     Route: 065

REACTIONS (6)
  - APNOEA [None]
  - LETHARGY [None]
  - MULTIPLE DRUG OVERDOSE [None]
  - RESPIRATORY DEPRESSION [None]
  - SNORING [None]
  - SOMNOLENCE [None]
